FAERS Safety Report 8765955 (Version 1)
Quarter: 2012Q4

REPORT INFORMATION
  Report Type: 
  Country: US (occurrence: US)
  Receive Date: 20120904
  Receipt Date: 20120904
  Transmission Date: 20130627
  Serious: Yes (Other)
  Sender: FDA-Public Use
  Company Number: US-ASTRAZENECA-2012SE64774

PATIENT
  Age: 66 Year
  Sex: Female

DRUGS (2)
  1. NEXIUM [Suspect]
     Route: 048
  2. TOPROL XL [Suspect]
     Route: 048

REACTIONS (6)
  - Fall [Unknown]
  - Head injury [Unknown]
  - Balance disorder [Unknown]
  - Concussion [Unknown]
  - Ligament sprain [Unknown]
  - Mental impairment [Unknown]
